FAERS Safety Report 10951100 (Version 3)
Quarter: 2015Q2

REPORT INFORMATION
  Report Type: Spontaneous
  Country: US (occurrence: US)
  Receive Date: 20150324
  Receipt Date: 20150422
  Transmission Date: 20150821
  Serious: Yes (Hospitalization)
  Sender: FDA-Public Use
  Company Number: US-MALLINCKRODT-T201501730

PATIENT
  Age: 52 Year
  Sex: Male

DRUGS (1)
  1. H.P. ACTHAR [Suspect]
     Active Substance: CORTICOTROPIN
     Indication: PROTEINURIA
     Dosage: 80 U, BIWEEKLY
     Route: 058
     Dates: start: 20140908, end: 20150315

REACTIONS (6)
  - Sepsis [Recovering/Resolving]
  - Abdominal pain [Unknown]
  - Blood creatinine increased [Recovered/Resolved]
  - Faeces discoloured [Recovered/Resolved]
  - Diverticulitis [Unknown]
  - Diarrhoea [Unknown]

NARRATIVE: CASE EVENT DATE: 201503
